FAERS Safety Report 17349142 (Version 2)
Quarter: 2020Q1

REPORT INFORMATION
  Report Type: Report from Study
  Country: US (occurrence: US)
  Receive Date: 20200129
  Receipt Date: 20200221
  Transmission Date: 20200409
  Serious: Yes (Life-Threatening, Hospitalization, Other)
  Sender: FDA-Public Use
  Company Number: US-BRISTOL-MYERS SQUIBB COMPANY-BMS-2020-005856

PATIENT
  Age: 20 Year
  Sex: Female
  Weight: 49 kg

DRUGS (2)
  1. NIVOLUMAB [Suspect]
     Active Substance: NIVOLUMAB
     Indication: DESMOID TUMOUR
     Dosage: 2160 MILLIGRAM
     Route: 042
     Dates: start: 20190918, end: 20191225
  2. IPILIMUMAB [Suspect]
     Active Substance: IPILIMUMAB
     Indication: DESMOID TUMOUR
     Dosage: 720 MILLIGRAM
     Route: 042
     Dates: start: 20190918, end: 20191225

REACTIONS (2)
  - Depression [Recovering/Resolving]
  - Suicide attempt [Recovered/Resolved]

NARRATIVE: CASE EVENT DATE: 20200108
